FAERS Safety Report 4266023-0 (Version None)
Quarter: 2004Q1

REPORT INFORMATION
  Report Type: 
  Country: None (occurrence: None)
  Receive Date: 20040106
  Receipt Date: 20031224
  Transmission Date: 20041129
  Serious: Yes (Life-Threatening, Hospitalization)
  Sender: FDA-Public Use
  Company Number: 2003118694

PATIENT
  Age: 60 Year
  Sex: Female

DRUGS (3)
  1. SULPERAZON (CEFOPERAZONE, SULBACTAM) [Suspect]
     Indication: INFECTION
     Dosage: 2 GRAM (BID), INTRAVENOUS
     Route: 042
     Dates: start: 20031104, end: 20031104
  2. SODIUM BICARBONATE IN PLASTIC CONTAINER [Concomitant]
  3. CALCIUM (CALCIUM) [Concomitant]

REACTIONS (3)
  - ANAPHYLACTIC SHOCK [None]
  - CARDIAC ARREST [None]
  - PULMONARY TUBERCULOSIS [None]
